FAERS Safety Report 11995342 (Version 2)
Quarter: 2016Q1

REPORT INFORMATION
  Report Type: Spontaneous
  Country: US (occurrence: US)
  Receive Date: 20160203
  Receipt Date: 20160217
  Transmission Date: 20160526
  Serious: No
  Sender: FDA-Public Use
  Company Number: US-BAYER-2016-021219

PATIENT
  Age: 1 Year
  Sex: Female

DRUGS (4)
  1. CHILDREN CLARITIN ALLERGY [Suspect]
     Active Substance: LORATADINE
     Indication: RESPIRATORY TRACT CONGESTION
  2. CHILDREN CLARITIN ALLERGY [Suspect]
     Active Substance: LORATADINE
     Indication: NASOPHARYNGITIS
     Dosage: 1 FULL TABLET AND THEN HALF OF ONE, ONCE
     Route: 048
     Dates: start: 20160202, end: 20160202
  3. CHILDREN CLARITIN ALLERGY [Suspect]
     Active Substance: LORATADINE
     Indication: PNEUMONIA
  4. CHILDREN CLARITIN ALLERGY [Suspect]
     Active Substance: LORATADINE
     Indication: BRONCHITIS

REACTIONS (2)
  - Product use issue [None]
  - Accidental exposure to product by child [None]

NARRATIVE: CASE EVENT DATE: 20160202
